FAERS Safety Report 8174482-6 (Version None)
Quarter: 2012Q1

REPORT INFORMATION
  Report Type: 
  Country: None (occurrence: None)
  Receive Date: 20120229
  Receipt Date: 20120223
  Transmission Date: 20120608
  Serious: Yes (Life-Threatening, Hospitalization)
  Sender: FDA-Public Use
  Company Number: SE-ROCHE-1010555

PATIENT
  Age: 58 Year
  Sex: Female
  Weight: 95.5 kg

DRUGS (8)
  1. ENOXAPARIN NATRIUM [Concomitant]
  2. BETAMETASONA [Concomitant]
     Dates: start: 20111031
  3. VEMURAFENIB [Suspect]
     Indication: MALIGNANT MELANOMA
     Dosage: LAST DOSE PRIOR TO SAE: 05/NOV/2011
     Route: 048
     Dates: start: 20111031, end: 20111105
  4. ACETAMINOPHEN [Concomitant]
     Dates: start: 20110809
  5. OMEPRAZOLE [Concomitant]
     Dates: start: 20110928
  6. METOCLOPRAMIDE [Concomitant]
     Dates: start: 20110923
  7. LEVOTYROXIN [Concomitant]
     Indication: HYPOTHYROIDISM
     Dates: start: 20110809
  8. XENICAL [Concomitant]
     Dates: start: 20110809

REACTIONS (1)
  - TUMOUR LYSIS SYNDROME [None]
